FAERS Safety Report 11459365 (Version 1)
Quarter: 2015Q3

REPORT INFORMATION
  Report Type: Spontaneous
  Country: US (occurrence: US)
  Receive Date: 20150904
  Receipt Date: 20150904
  Transmission Date: 20151125
  Serious: No
  Sender: FDA-Public Use
  Company Number: US-JNJFOC-20150802292

PATIENT
  Sex: Female
  Weight: 54.43 kg

DRUGS (1)
  1. TOPIRAMATE. [Suspect]
     Active Substance: TOPIRAMATE
     Indication: MIGRAINE
     Route: 048
     Dates: start: 2010

REACTIONS (3)
  - Migraine [Not Recovered/Not Resolved]
  - Speech disorder [Recovering/Resolving]
  - Cognitive disorder [Recovering/Resolving]
